FAERS Safety Report 13228995 (Version 6)
Quarter: 2017Q2

REPORT INFORMATION
  Report Type: Report from Study
  Country: CA (occurrence: CA)
  Receive Date: 20170213
  Receipt Date: 20170510
  Transmission Date: 20170830
  Serious: Yes (Other)
  Sender: FDA-Public Use
  Company Number: CA-ROCHE-1884275

PATIENT
  Age: 43 Year
  Sex: Male

DRUGS (9)
  1. PANTOPRAZOLE [Concomitant]
     Active Substance: PANTOPRAZOLE
  2. SULPHASALAZINE [Concomitant]
     Active Substance: SULFASALAZINE
  3. ACTEMRA [Suspect]
     Active Substance: TOCILIZUMAB
     Indication: RHEUMATOID ARTHRITIS
     Route: 058
     Dates: start: 20170130
  4. ATENOLOL. [Concomitant]
     Active Substance: ATENOLOL
  5. ACTEMRA [Suspect]
     Active Substance: TOCILIZUMAB
     Indication: RHEUMATOID ARTHRITIS
     Route: 042
     Dates: start: 20170123, end: 20170123
  6. ACTEMRA [Suspect]
     Active Substance: TOCILIZUMAB
     Route: 042
     Dates: start: 20170321
  7. METHOTREXATE. [Concomitant]
     Active Substance: METHOTREXATE
  8. RAMIPRIL. [Concomitant]
     Active Substance: RAMIPRIL
  9. PREDNISONE. [Concomitant]
     Active Substance: PREDNISONE

REACTIONS (6)
  - Anxiety [Recovered/Resolved]
  - Drug hypersensitivity [Not Recovered/Not Resolved]
  - Oxygen saturation decreased [Unknown]
  - Dermatitis contact [Not Recovered/Not Resolved]
  - Oral herpes [Unknown]
  - Drug ineffective [Unknown]

NARRATIVE: CASE EVENT DATE: 20170425
